FAERS Safety Report 11168168 (Version 1)
Quarter: 2015Q2

REPORT INFORMATION
  Report Type: Spontaneous
  Country: US (occurrence: US)
  Receive Date: 20150605
  Receipt Date: 20150605
  Transmission Date: 20150821
  Serious: Yes (Hospitalization)
  Sender: FDA-Public Use
  Company Number: US-MYLANLABS-2015M1018829

PATIENT

DRUGS (4)
  1. VANCOMYCIN [Suspect]
     Active Substance: VANCOMYCIN
     Dosage: (6 WEEKS WITH HEMODIALYSIS)
  2. PIPERACILLIN/TAZOBACTAM [Suspect]
     Active Substance: PIPERACILLIN SODIUM\TAZOBACTAM SODIUM
  3. GENTAMICIN. [Suspect]
     Active Substance: GENTAMICIN
  4. RIFAMPICIN [Suspect]
     Active Substance: RIFAMPIN
     Dosage: (6 WEEKS WITH HEMODIALYSIS)

REACTIONS (1)
  - Drug ineffective [Not Recovered/Not Resolved]
